FAERS Safety Report 4450929-3 (Version None)
Quarter: 2004Q3

REPORT INFORMATION
  Report Type: 
  Country: None (occurrence: None)
  Receive Date: 20040916
  Receipt Date: 20030421
  Transmission Date: 20050211
  Serious: Yes (Hospitalization, Other)
  Sender: FDA-Public Use
  Company Number: US-BRISTOL-MYERS SQUIBB COMPANY-12259321

PATIENT
  Age: 28 Year
  Sex: Female

DRUGS (13)
  1. STADOL [Suspect]
     Route: 045
     Dates: start: 19930401, end: 20010101
  2. STADOL [Suspect]
     Dosage: THEN RESTARTED JUN 1998
     Route: 030
     Dates: start: 19850308, end: 20010101
  3. PHENOBARBITAL TAB [Concomitant]
  4. AMBIEN [Concomitant]
  5. CLONIDINE HCL [Concomitant]
  6. NUBAIN [Concomitant]
     Route: 030
  7. DEMEROL [Concomitant]
  8. HYDROCODONE + ACETAMINOPHEN [Concomitant]
     Dosage: DOSING: 5/500
  9. GABAPENTIN [Concomitant]
  10. VISTARIL [Concomitant]
     Route: 030
  11. OXYCONTIN [Concomitant]
  12. LORAZEPAM [Concomitant]
     Indication: CONVULSION
  13. LOPERAMIDE HCL [Concomitant]
     Route: 048

REACTIONS (1)
  - DEPENDENCE [None]
